FAERS Safety Report 22200131 (Version 1)
Quarter: 2023Q2

REPORT INFORMATION
  Report Type: Report from Study
  Country: US (occurrence: US)
  Receive Date: 20230412
  Receipt Date: 20230412
  Transmission Date: 20230722
  Serious: Yes (Hospitalization)
  Sender: FDA-Public Use
  Company Number: US-GBT-021507

PATIENT
  Age: 15 Year
  Sex: Female

DRUGS (17)
  1. OXBRYTA [Suspect]
     Active Substance: VOXELOTOR
     Indication: Sickle cell disease
     Dates: start: 20200609, end: 202101
  2. folic acid (FOLVITE) [Concomitant]
     Indication: Sickle cell disease
     Route: 048
     Dates: start: 20110927
  3. VITAMIN D3 [Concomitant]
     Active Substance: CHOLECALCIFEROL
     Indication: Vitamin D deficiency
     Dosage: DOSAGE: 1000 U
     Route: 048
     Dates: start: 20140224
  4. oxyCODONE IR (Roxicodone) [Concomitant]
     Indication: Sickle cell disease
     Dosage: PRN
     Route: 048
     Dates: start: 20181016
  5. HYDROXYUREA [Concomitant]
     Active Substance: HYDROXYUREA
     Indication: Sickle cell disease
     Route: 048
     Dates: start: 20191029
  6. HYDROCODONE [Concomitant]
     Active Substance: HYDROCODONE
     Indication: Sickle cell disease
     Dosage: ONCE
     Route: 048
     Dates: start: 20220419, end: 20220419
  7. MORPHINE SULFATE [Concomitant]
     Active Substance: MORPHINE SULFATE
     Indication: Sickle cell disease
     Dosage: ONCE
     Route: 042
     Dates: start: 20220419, end: 20220419
  8. MORPHINE SULFATE [Concomitant]
     Active Substance: MORPHINE SULFATE
     Indication: Sickle cell disease
     Dosage: TWICE - 0936 AND 1119
     Route: 042
     Dates: start: 20211126, end: 20211126
  9. KETOROLAC TROMETHAMINE [Concomitant]
     Active Substance: KETOROLAC TROMETHAMINE
     Indication: Sickle cell disease
     Dosage: ONCE
     Route: 042
     Dates: start: 20220419, end: 20220419
  10. KETOROLAC TROMETHAMINE [Concomitant]
     Active Substance: KETOROLAC TROMETHAMINE
     Indication: Sickle cell disease
     Dosage: ONCE
     Route: 042
     Dates: start: 20211126, end: 20211126
  11. CEFTRIAXONE SODIUM [Concomitant]
     Active Substance: CEFTRIAXONE SODIUM
     Indication: Nausea
     Dosage: ONCE
     Route: 042
     Dates: start: 20220419, end: 20220419
  12. ACETAMINOPHEN [Concomitant]
     Active Substance: ACETAMINOPHEN
     Indication: Sickle cell anaemia with crisis
     Route: 048
     Dates: start: 20220419, end: 20220419
  13. packed red blood cells (PRBC) [Concomitant]
     Dosage: DOSAGE: 1 U
     Dates: start: 20210614
  14. packed red blood cells (PRBC) [Concomitant]
     Dosage: DOSAGE: 1 U
     Dates: start: 20210615
  15. packed red blood cells (PRBC) [Concomitant]
     Dosage: DOSAGE: 1 U
     Dates: start: 20210616
  16. packed red blood cells (PRBC) [Concomitant]
     Dosage: DOSAGE: 1 U
     Dates: start: 20220910
  17. packed red blood cells (PRBC) [Concomitant]
     Dosage: DOSAGE: 2 U
     Dates: start: 20220911

REACTIONS (1)
  - Tooth impacted [Recovered/Resolved]

NARRATIVE: CASE EVENT DATE: 20210201
